FAERS Safety Report 5737914-6 (Version None)
Quarter: 2008Q2

REPORT INFORMATION
  Report Type: 
  Country: None (occurrence: None)
  Receive Date: 20080512
  Receipt Date: 20080512
  Transmission Date: 20081010
  Serious: Yes (Hospitalization)
  Sender: FDA-Public Use
  Company Number: None

PATIENT
  Age: 54 Year
  Sex: Male
  Weight: 102.1 kg

DRUGS (2)
  1. CLOPIDOGREL [Suspect]
     Indication: CORONARY ARTERIAL STENT INSERTION
     Dosage: 75MG EVERY DAY PO
     Route: 048
     Dates: start: 20080209, end: 20080214
  2. CLOPIDOGREL [Suspect]
     Indication: MYOCARDIAL INFARCTION
     Dosage: 75MG EVERY DAY PO
     Route: 048
     Dates: start: 20080209, end: 20080214

REACTIONS (3)
  - NO THERAPEUTIC RESPONSE [None]
  - RASH ERYTHEMATOUS [None]
  - RASH MACULO-PAPULAR [None]
